FAERS Safety Report 19650195 (Version 1)
Quarter: 2021Q3

REPORT INFORMATION
  Report Type: Spontaneous
  Country: CN (occurrence: CN)
  Receive Date: 20210803
  Receipt Date: 20210803
  Transmission Date: 20211014
  Serious: Yes (Life-Threatening)
  Sender: FDA-Public Use
  Company Number: CN-ASTRAZENECA-2021A653209

PATIENT
  Age: 74 Year
  Sex: Female
  Weight: 45 kg

DRUGS (1)
  1. FASLODEX [Suspect]
     Active Substance: FULVESTRANT
     Indication: BREAST ADENOMA
     Route: 030
     Dates: start: 20210723, end: 20210723

REACTIONS (5)
  - Asthenia [Unknown]
  - Vomiting [Unknown]
  - Nausea [Unknown]
  - Hypersensitivity [Recovering/Resolving]
  - Blood pressure decreased [Unknown]

NARRATIVE: CASE EVENT DATE: 20210723
